FAERS Safety Report 11933844 (Version 2)
Quarter: 2016Q1

REPORT INFORMATION
  Report Type: Spontaneous
  Country: IT (occurrence: IT)
  Receive Date: 20160121
  Receipt Date: 20160209
  Transmission Date: 20160526
  Serious: Yes (Death)
  Sender: FDA-Public Use
  Company Number: IT-WATSON-2016-00758

PATIENT
  Age: 61 Year
  Sex: Male

DRUGS (2)
  1. PROPOFOL (WATSON LABORATORIES) [Suspect]
     Active Substance: PROPOFOL
     Indication: COMPLETED SUICIDE
     Dosage: UNK
     Route: 041
  2. NACL [Concomitant]
     Active Substance: SODIUM CHLORIDE
     Indication: COMPLETED SUICIDE
     Dosage: 100 ML, UNK
     Route: 065

REACTIONS (3)
  - Drug abuse [Fatal]
  - Completed suicide [Fatal]
  - Toxicity to various agents [Fatal]
